FAERS Safety Report 4455602-3 (Version None)
Quarter: 2004Q3

REPORT INFORMATION
  Report Type: 
  Country: None (occurrence: None)
  Receive Date: 20040922
  Receipt Date: 20040625
  Transmission Date: 20050211
  Serious: Yes (Hospitalization)
  Sender: FDA-Public Use
  Company Number: 200412213JP

PATIENT
  Age: 39 Year
  Sex: Female
  Weight: 59 kg

DRUGS (10)
  1. LANTUS [Suspect]
     Indication: BLOOD GLUCOSE
     Route: 058
     Dates: start: 20040616, end: 20040624
  2. OPTIPEN (INSULIN PUMP) [Suspect]
  3. HUMALOG [Concomitant]
     Dosage: DOSE UNIT: UNITS
     Route: 058
  4. PENFILL R [Concomitant]
     Dosage: DOSE UNIT: UNITS
     Route: 042
  5. NPH INSULIN [Concomitant]
     Dosage: DOSE UNIT: UNITS
     Route: 058
     Dates: end: 20040616
  6. PL GRAN. [Concomitant]
     Indication: NASOPHARYNGITIS
     Route: 048
     Dates: start: 20040610, end: 20040617
  7. TRANSAMIN [Concomitant]
     Indication: NASOPHARYNGITIS
     Route: 048
     Dates: start: 20040610, end: 20040617
  8. MUCOSTA [Concomitant]
     Indication: GASTRITIS
     Route: 048
     Dates: start: 20040610, end: 20040621
  9. MUCODYNE [Concomitant]
     Indication: NASOPHARYNGITIS
     Route: 048
     Dates: start: 20040614, end: 20040621
  10. MEDICON [Concomitant]
     Indication: NASOPHARYNGITIS
     Route: 048
     Dates: start: 20040612, end: 20040621

REACTIONS (5)
  - ALANINE AMINOTRANSFERASE INCREASED [None]
  - ASPARTATE AMINOTRANSFERASE INCREASED [None]
  - BLOOD BILIRUBIN INCREASED [None]
  - EPSTEIN-BARR VIRUS ANTIBODY POSITIVE [None]
  - HEPATIC FUNCTION ABNORMAL [None]
